FAERS Safety Report 21485310 (Version 1)
Quarter: 2022Q4

REPORT INFORMATION
  Report Type: Spontaneous
  Country: US (occurrence: None)
  Receive Date: 20221019
  Receipt Date: 20221019
  Transmission Date: 20230113
  Serious: Yes (Hospitalization)
  Sender: FDA-Public Use
  Company Number: None

PATIENT
  Age: 76 Year
  Sex: Female

DRUGS (1)
  1. SPRYCEL [Suspect]
     Active Substance: DASATINIB
     Indication: Chronic myeloid leukaemia
     Dosage: FREQUENCY : DAILY;?
     Route: 048
     Dates: start: 20220916

REACTIONS (7)
  - Pancytopenia [None]
  - Pleural effusion [None]
  - Transfusion [None]
  - Cardiac disorder [None]
  - Disease complication [None]
  - Adverse drug reaction [None]
  - Cardiac pacemaker insertion [None]

NARRATIVE: CASE EVENT DATE: 20221019
